FAERS Safety Report 7556239-X (Version None)
Quarter: 2011Q2

REPORT INFORMATION
  Report Type: 
  Country: None (occurrence: None)
  Receive Date: 20110620
  Receipt Date: 20110613
  Transmission Date: 20111010
  Serious: No
  Sender: FDA-Public Use
  Company Number: US-PFIZER INC-2011129694

PATIENT
  Sex: Female

DRUGS (1)
  1. DEPO-PROVERA [Suspect]
     Dosage: UNK

REACTIONS (8)
  - ABDOMINAL PAIN UPPER [None]
  - MENORRHAGIA [None]
  - ASTHENIA [None]
  - PAIN [None]
  - MALAISE [None]
  - HYPERHIDROSIS [None]
  - DIARRHOEA [None]
  - NAUSEA [None]
